FAERS Safety Report 16038019 (Version 1)
Quarter: 2019Q1

REPORT INFORMATION
  Report Type: Spontaneous
  Country: US (occurrence: US)
  Receive Date: 20190305
  Receipt Date: 20190305
  Transmission Date: 20190418
  Serious: Yes (Hospitalization)
  Sender: FDA-Public Use
  Company Number: US-HERITAGE PHARMACEUTICALS-2019HTG00055

PATIENT
  Sex: Female
  Weight: 55.78 kg

DRUGS (3)
  1. FELODIPINE. [Suspect]
     Active Substance: FELODIPINE
     Dosage: 5 MG, 2X/DAY
     Route: 048
     Dates: start: 2018
  2. CLARITIN [Concomitant]
     Active Substance: LORATADINE
  3. FELODIPINE. [Suspect]
     Active Substance: FELODIPINE
     Indication: HYPERTENSION
     Dosage: 10 MG, 1X/DAY
     Route: 048
     Dates: start: 1999, end: 2018

REACTIONS (1)
  - Blood pressure inadequately controlled [Recovered/Resolved]

NARRATIVE: CASE EVENT DATE: 2014
